FAERS Safety Report 6182914-8 (Version None)
Quarter: 2009Q2

REPORT INFORMATION
  Report Type: 
  Country: None (occurrence: None)
  Receive Date: 20090505
  Receipt Date: 20090423
  Transmission Date: 20091009
  Serious: Yes (Disabling)
  Sender: FDA-Public Use
  Company Number: 2009AP001670

PATIENT
  Age: 75 Year
  Sex: Female

DRUGS (6)
  1. PERINDOPRIL ERBUMINE [Suspect]
  2. PRAVASTATIN SODIUM [Suspect]
  3. ACTONEL [Suspect]
     Dosage: PO
     Route: 048
  4. CALCIUM CARBONATE (CALCIUM CARBONATE) [Concomitant]
  5. DOCUSATE (DOCUSATE) [Concomitant]
  6. LEVOTHYROXINE SODIUM [Concomitant]

REACTIONS (2)
  - GAIT DISTURBANCE [None]
  - PERIPHERAL SENSORY NEUROPATHY [None]
